FAERS Safety Report 7013961-1 (Version None)
Quarter: 2010Q3

REPORT INFORMATION
  Report Type: 
  Country: None (occurrence: None)
  Receive Date: 20100924
  Receipt Date: 20100916
  Transmission Date: 20110219
  Serious: Yes (Hospitalization)
  Sender: FDA-Public Use
  Company Number: DE-AMGEN-QUU440035

PATIENT
  Age: 69 Year
  Sex: Female

DRUGS (3)
  1. ENBREL [Suspect]
     Indication: PSORIATIC ARTHROPATHY
     Route: 058
     Dates: start: 20081212, end: 20100101
  2. ENBREL [Suspect]
     Route: 058
     Dates: start: 20100101
  3. METHOTREXATE SODIUM [Concomitant]
     Route: 058

REACTIONS (4)
  - CONCOMITANT DISEASE AGGRAVATED [None]
  - CONDITION AGGRAVATED [None]
  - OVARIAN CYST [None]
  - PSORIATIC ARTHROPATHY [None]
